FAERS Safety Report 8173012-2 (Version None)
Quarter: 2012Q1

REPORT INFORMATION
  Report Type: 
  Country: None (occurrence: None)
  Receive Date: 20120229
  Receipt Date: 20120221
  Transmission Date: 20120608
  Serious: Yes (Other)
  Sender: FDA-Public Use
  Company Number: US-BAYER-2012-018558

PATIENT
  Age: 30 Year
  Sex: Female
  Weight: 122 kg

DRUGS (5)
  1. ZOCOR [Concomitant]
  2. YASMIN [Suspect]
  3. LIPITOR [Concomitant]
  4. INDERAL [Concomitant]
  5. CELEBREX [Concomitant]

REACTIONS (1)
  - PULMONARY EMBOLISM [None]
